FAERS Safety Report 11243680 (Version 1)
Quarter: 2015Q3

REPORT INFORMATION
  Report Type: Spontaneous
  Country: US (occurrence: US)
  Receive Date: 20150707
  Receipt Date: 20150707
  Transmission Date: 20151125
  Serious: Yes (Hospitalization, Disabling)
  Sender: FDA-Public Use
  Company Number: US-HORIZON-ACT-0110-2015

PATIENT
  Age: 20 Month
  Sex: Male

DRUGS (5)
  1. CEPHALEXIN. [Concomitant]
     Active Substance: CEPHALEXIN
  2. ACYCLOVIR. [Concomitant]
     Active Substance: ACYCLOVIR
  3. NOXAFIL [Concomitant]
     Active Substance: POSACONAZOLE
  4. IBUPROFEN. [Concomitant]
     Active Substance: IBUPROFEN
  5. ACTIMMUNE [Suspect]
     Active Substance: INTERFERON GAMMA-1B
     Indication: CHRONIC GRANULOMATOUS DISEASE

REACTIONS (5)
  - Parainfluenzae virus infection [Unknown]
  - Hand-foot-and-mouth disease [Unknown]
  - Deafness unilateral [Unknown]
  - Feeling abnormal [Unknown]
  - Infection [Unknown]

NARRATIVE: CASE EVENT DATE: 2015
